FAERS Safety Report 4711153-X (Version None)
Quarter: 2005Q3

REPORT INFORMATION
  Report Type: 
  Country: None (occurrence: None)
  Receive Date: 20050708
  Receipt Date: 20050610
  Transmission Date: 20060218
  Serious: Yes (Hospitalization)
  Sender: FDA-Public Use
  Company Number: HQWYE952901JUL05

PATIENT
  Sex: Female

DRUGS (2)
  1. PROTIUM                (PANTOPRAZOLE, INJECTION) [Suspect]
     Dosage: 40 MG 2X PER 1 DAY INTRAVENOUS
     Route: 042
     Dates: start: 20050619, end: 20050619
  2. OMEPRAZOLE [Concomitant]

REACTIONS (2)
  - VISION BLURRED [None]
  - VISUAL DISTURBANCE [None]
